FAERS Safety Report 12604526 (Version 1)
Quarter: 2016Q3

REPORT INFORMATION
  Report Type: Spontaneous
  Country: CO (occurrence: CO)
  Receive Date: 20160728
  Receipt Date: 20160728
  Transmission Date: 20161109
  Serious: Yes (Other)
  Sender: FDA-Public Use
  Company Number: CO-PFIZER INC-2016097019

PATIENT
  Age: 7 Year
  Sex: Male

DRUGS (2)
  1. GENOTROPIN [Suspect]
     Active Substance: SOMATROPIN
     Indication: PRADER-WILLI SYNDROME
     Dosage: 0.8 MG, DAILY
     Route: 058
     Dates: start: 201401, end: 20140414
  2. GENOTROPIN [Suspect]
     Active Substance: SOMATROPIN
     Indication: GROWTH HORMONE DEFICIENCY
     Dosage: 0.6 MG, DAILY
     Route: 058
     Dates: start: 201301, end: 201401

REACTIONS (13)
  - Snoring [Unknown]
  - Blood testosterone decreased [Unknown]
  - Restless legs syndrome [Unknown]
  - Blood thyroid stimulating hormone increased [Recovered/Resolved]
  - Hyperhidrosis [Unknown]
  - Adrenal disorder [Recovered/Resolved]
  - Epiphyses premature fusion [Unknown]
  - Dehydroepiandrosterone increased [Unknown]
  - Tri-iodothyronine free increased [Unknown]
  - Hyperandrogenism [Unknown]
  - Skin odour abnormal [Unknown]
  - Precocious puberty [Unknown]
  - Sleep apnoea syndrome [Unknown]

NARRATIVE: CASE EVENT DATE: 2014
